FAERS Safety Report 5904725-8 (Version None)
Quarter: 2008Q3

REPORT INFORMATION
  Report Type: 
  Country: None (occurrence: None)
  Receive Date: 20080909
  Receipt Date: 20080509
  Transmission Date: 20090109
  Serious: Yes (Hospitalization)
  Sender: FDA-Public Use
  Company Number: 163-20785-08050217

PATIENT
  Age: 33 Year
  Sex: Male

DRUGS (4)
  1. THALOMID [Suspect]
     Indication: MULTIPLE MYELOMA
     Dosage: 100 MG, 1 IN 1 D, ORAL
     Route: 048
     Dates: start: 20080301, end: 20080502
  2. THALOMID [Suspect]
     Indication: PLASMACYTOSIS
     Dosage: 100 MG, 1 IN 1 D, ORAL
     Route: 048
     Dates: start: 20080301, end: 20080502
  3. VELCADE [Concomitant]
  4. AREDIA [Concomitant]

REACTIONS (3)
  - CHEST PAIN [None]
  - PNEUMONIA [None]
  - PULMONARY THROMBOSIS [None]
